FAERS Safety Report 5906902-9 (Version None)
Quarter: 2008Q4

REPORT INFORMATION
  Report Type: 
  Country: None (occurrence: None)
  Receive Date: 20081003
  Receipt Date: 20081001
  Transmission Date: 20090506
  Serious: Yes (Other)
  Sender: FDA-Public Use
  Company Number: US-SP-2008-03023

PATIENT
  Age: 17 Year
  Sex: Female

DRUGS (2)
  1. TUBERSOL [Suspect]
     Indication: TUBERCULIN TEST
     Route: 023
     Dates: start: 20080905
  2. TUBERSOL [Suspect]
     Route: 023
     Dates: start: 20080905

REACTIONS (8)
  - CONVULSION [None]
  - DROOLING [None]
  - DYSPHAGIA [None]
  - DYSPNOEA [None]
  - HYPOKALAEMIA [None]
  - LOSS OF CONSCIOUSNESS [None]
  - MYOCLONUS [None]
  - SYNCOPE [None]
